FAERS Safety Report 16823244 (Version 1)
Quarter: 2019Q3

REPORT INFORMATION
  Report Type: Spontaneous
  Country: DE (occurrence: DE)
  Receive Date: 20190918
  Receipt Date: 20190918
  Transmission Date: 20191005
  Serious: Yes (Hospitalization, Other)
  Sender: FDA-Public Use
  Company Number: DE-MYLANLABS-2019M1086454

PATIENT
  Age: 35 Year
  Sex: Male

DRUGS (1)
  1. CABERGOLINE. [Suspect]
     Active Substance: CABERGOLINE
     Indication: RESTLESS LEGS SYNDROME
     Dosage: 20 MILLIGRAM, UNK

REACTIONS (5)
  - Toxicity to various agents [Unknown]
  - Gambling disorder [Recovered/Resolved]
  - Overdose [Unknown]
  - Libido increased [Unknown]
  - Product use in unapproved indication [Unknown]
